FAERS Safety Report 24752628 (Version 1)
Quarter: 2024Q4

REPORT INFORMATION
  Report Type: Spontaneous
  Country: CN (occurrence: CN)
  Receive Date: 20241219
  Receipt Date: 20241219
  Transmission Date: 20250115
  Serious: Yes (Disabling)
  Sender: GE HEALTHCARE
  Company Number: CN-GE HEALTHCARE-2024CSU014534

PATIENT
  Age: 72 Year
  Sex: Male

DRUGS (1)
  1. OMNIPAQUE [Suspect]
     Active Substance: IOHEXOL
     Indication: Computerised tomogram
     Dosage: 80 ML, TOTAL
     Route: 042
     Dates: start: 20240507, end: 20240507

REACTIONS (3)
  - Musculoskeletal disorder [Not Recovered/Not Resolved]
  - Cyanosis [Not Recovered/Not Resolved]
  - Oedema peripheral [Not Recovered/Not Resolved]

NARRATIVE: CASE EVENT DATE: 20240507
